FAERS Safety Report 21549004 (Version 4)
Quarter: 2023Q1

REPORT INFORMATION
  Report Type: Report from Study
  Country: US (occurrence: US)
  Receive Date: 20221103
  Receipt Date: 20230103
  Transmission Date: 20230418
  Serious: Yes (Hospitalization, Other)
  Sender: FDA-Public Use
  Company Number: US-UCBSA-2022062848

PATIENT
  Sex: Female

DRUGS (5)
  1. CERTOLIZUMAB PEGOL [Suspect]
     Active Substance: CERTOLIZUMAB PEGOL
     Indication: Rheumatoid arthritis
     Dosage: 400 MILLIGRAM, EV 2 WEEKS(QOW)
  2. CERTOLIZUMAB PEGOL [Suspect]
     Active Substance: CERTOLIZUMAB PEGOL
     Dosage: 400 MILLIGRAM, EV 4 WEEKS
     Dates: start: 202203, end: 202205
  3. CERTOLIZUMAB PEGOL [Suspect]
     Active Substance: CERTOLIZUMAB PEGOL
     Dosage: 200 MILLIGRAM, EV 2 WEEKS(QOW)
     Dates: start: 20221027, end: 2022
  4. INFLUENZA VIRUS VACCINE [Concomitant]
     Active Substance: INFLUENZA VIRUS VACCINE
     Indication: Influenza immunisation
  5. BIOFREEZE [CAMPHOR;LEVOMENTHOL] [Concomitant]
     Indication: Product used for unknown indication

REACTIONS (12)
  - Respiratory disorder [Unknown]
  - Rheumatoid arthritis [Unknown]
  - Stress [Unknown]
  - Neuralgia [Unknown]
  - Haemoglobin decreased [Unknown]
  - Injection site swelling [Unknown]
  - Adverse drug reaction [Unknown]
  - Chromaturia [Unknown]
  - Headache [Unknown]
  - Hyperhidrosis [Unknown]
  - Incorrect dose administered [Unknown]
  - Drug ineffective [Unknown]

NARRATIVE: CASE EVENT DATE: 20220101
